FAERS Safety Report 9470789 (Version 1)
Quarter: 2013Q3

REPORT INFORMATION
  Report Type: Spontaneous
  Country: US (occurrence: US)
  Receive Date: 20130822
  Receipt Date: 20130822
  Transmission Date: 20140515
  Serious: Yes (Death)
  Sender: FDA-Public Use
  Company Number: US-PFIZER INC-2013240944

PATIENT
  Age: 37 Year
  Sex: Male

DRUGS (1)
  1. CAMPTOSAR [Suspect]
     Indication: COLON CANCER
     Dosage: 184 MG, EVERY 2 WEEKS
     Dates: start: 20130603

REACTIONS (2)
  - Disease progression [Fatal]
  - Colon cancer [Fatal]
